FAERS Safety Report 20138868 (Version 1)
Quarter: 2021Q4

REPORT INFORMATION
  Report Type: Spontaneous
  Country: CZ (occurrence: CZ)
  Receive Date: 20211202
  Receipt Date: 20211202
  Transmission Date: 20220303
  Serious: Yes (Other)
  Sender: FDA-Public Use
  Company Number: CZ-STRIDES ARCOLAB LIMITED-2021SP030463

PATIENT
  Sex: Male
  Weight: 80 kg

DRUGS (7)
  1. PREDNISOLONE [Suspect]
     Active Substance: PREDNISOLONE
     Indication: Hypoglycaemia
     Dosage: 1 MILLIGRAM/KILOGRAM
     Route: 048
     Dates: start: 2020
  2. PREDNISOLONE [Suspect]
     Active Substance: PREDNISOLONE
     Indication: Insulin autoimmune syndrome
     Dosage: 0.5 MILLIGRAM/KILOGRAM
     Route: 048
     Dates: start: 20200327
  3. PREDNISOLONE [Suspect]
     Active Substance: PREDNISOLONE
     Dosage: UNK, SLOW TAPER
     Route: 048
  4. FLUTICASONE [Concomitant]
     Active Substance: FLUTICASONE
     Indication: Seasonal allergy
     Dosage: UNK, USED OCCASIONALLY DURING THE POLLEN SEASON
     Route: 061
     Dates: start: 2020
  5. ALPHA LIPOIC ACID [Concomitant]
     Active Substance: .ALPHA.-LIPOIC ACID
     Indication: Pain in extremity
     Dosage: UNK
     Route: 065
     Dates: start: 2020
  6. ALPHA LIPOIC ACID [Concomitant]
     Active Substance: .ALPHA.-LIPOIC ACID
     Indication: Back pain
  7. LEVOCETIRIZINE [Concomitant]
     Active Substance: LEVOCETIRIZINE
     Indication: Seasonal allergy
     Dosage: UNK
     Route: 065
     Dates: start: 2020

REACTIONS (1)
  - Deep vein thrombosis [Recovered/Resolved]

NARRATIVE: CASE EVENT DATE: 20200101
